FAERS Safety Report 17076735 (Version 10)
Quarter: 2021Q2

REPORT INFORMATION
  Report Type: Spontaneous
  Country: US (occurrence: US)
  Receive Date: 20191126
  Receipt Date: 20210616
  Transmission Date: 20210716
  Serious: Yes (Hospitalization, Other)
  Sender: FDA-Public Use
  Company Number: US-SA-2019SA206832

PATIENT
  Age: 60 Year
  Sex: Male

DRUGS (5)
  1. CERDELGA [Suspect]
     Active Substance: ELIGLUSTAT
     Dosage: 84 MG
     Route: 048
     Dates: start: 202011
  2. CERDELGA [Suspect]
     Active Substance: ELIGLUSTAT
     Dosage: UNK
     Route: 048
     Dates: start: 201911
  3. CERDELGA [Suspect]
     Active Substance: ELIGLUSTAT
     Indication: GAUCHER^S DISEASE
     Dosage: 84 MG, BID
     Route: 048
     Dates: start: 20190529
  4. CERDELGA [Suspect]
     Active Substance: ELIGLUSTAT
     Dosage: 85 MG,BID
     Route: 048
  5. CERDELGA [Suspect]
     Active Substance: ELIGLUSTAT
     Dosage: 84 MG, QD (ONCE A DAY)
     Route: 048
     Dates: start: 20200422, end: 20201014

REACTIONS (4)
  - Tremor [Not Recovered/Not Resolved]
  - Parkinson^s disease [Unknown]
  - Surgery [Unknown]
  - Product dose omission in error [Unknown]

NARRATIVE: CASE EVENT DATE: 201911
